FAERS Safety Report 6589476-1 (Version None)
Quarter: 2010Q1

REPORT INFORMATION
  Report Type: 
  Country: None (occurrence: None)
  Receive Date: 20100212
  Receipt Date: 20100128
  Transmission Date: 20100710
  Serious: Yes (Hospitalization)
  Sender: FDA-Public Use
  Company Number: 015174

PATIENT
  Sex: Male

DRUGS (8)
  1. PRIALT [Suspect]
     Indication: DRUG USE FOR UNKNOWN INDICATION
     Dosage: SEE IMAGE
     Route: 037
     Dates: start: 20090101, end: 20090101
  2. PRIALT [Suspect]
     Indication: DRUG USE FOR UNKNOWN INDICATION
     Dosage: SEE IMAGE
     Route: 037
     Dates: start: 20090828, end: 20090101
  3. PRIALT [Suspect]
     Indication: DRUG USE FOR UNKNOWN INDICATION
     Dosage: SEE IMAGE
     Route: 037
     Dates: end: 20090801
  4. PRIALT [Suspect]
     Indication: DRUG USE FOR UNKNOWN INDICATION
     Dosage: SEE IMAGE
     Route: 037
     Dates: start: 20090101, end: 20090903
  5. PRIALT [Suspect]
     Indication: DRUG USE FOR UNKNOWN INDICATION
     Dosage: SEE IMAGE
     Route: 037
     Dates: start: 20091207, end: 20100101
  6. PRIALT [Suspect]
     Indication: DRUG USE FOR UNKNOWN INDICATION
     Dosage: SEE IMAGE
     Route: 037
     Dates: start: 20100101, end: 20100101
  7. PRIALT [Suspect]
     Indication: DRUG USE FOR UNKNOWN INDICATION
     Dosage: SEE IMAGE
     Route: 037
     Dates: start: 20090601
  8. PALLADONE [Concomitant]

REACTIONS (3)
  - CONFUSIONAL STATE [None]
  - INTESTINAL HAEMORRHAGE [None]
  - PSYCHOTIC DISORDER [None]
